FAERS Safety Report 7592873-9 (Version None)
Quarter: 2011Q3

REPORT INFORMATION
  Report Type: 
  Country: None (occurrence: None)
  Receive Date: 20110706
  Receipt Date: 20110623
  Transmission Date: 20111222
  Serious: Yes (Hospitalization)
  Sender: FDA-Public Use
  Company Number: JP-BAYER-2011-045578

PATIENT
  Age: 81 Year
  Sex: Male
  Weight: 50.5 kg

DRUGS (8)
  1. MONOCLONAL ANTIBODIES [Suspect]
     Indication: HEPATIC NEOPLASM MALIGNANT
     Dosage: 6 MG/KG, OW
     Route: 042
     Dates: start: 20110412, end: 20110412
  2. CILOSTAZOL [Suspect]
     Indication: ARTERIOSCLEROSIS OBLITERANS
     Dosage: 100 MG, BID
     Route: 048
     Dates: start: 20110224, end: 20110525
  3. SORAFENIB (RAF KINASE INHIBITOR) [Suspect]
     Indication: HEPATIC NEOPLASM MALIGNANT
     Dosage: 400 MG, BID
     Route: 048
     Dates: start: 20110412, end: 20110412
  4. LOXONIN [Suspect]
     Indication: INTERVERTEBRAL DISC PROTRUSION
     Dosage: UNK
     Route: 048
     Dates: start: 20101126, end: 20110525
  5. MONOCLONAL ANTIBODIES [Suspect]
     Dosage: 2 MG/KG, OW
     Route: 042
     Dates: start: 20110419, end: 20110520
  6. CILOSTAZOL [Suspect]
     Route: 048
  7. SORAFENIB (RAF KINASE INHIBITOR) [Suspect]
     Dosage: 400 MG, QD
     Route: 048
     Dates: start: 20110413, end: 20110505
  8. SORAFENIB (RAF KINASE INHIBITOR) [Suspect]
     Dosage: 400 MG, QOD
     Route: 048
     Dates: start: 20110506, end: 20110525

REACTIONS (2)
  - HEPATIC INFARCTION [None]
  - UPPER GASTROINTESTINAL HAEMORRHAGE [None]
